FAERS Safety Report 4780882-4 (Version None)
Quarter: 2005Q3

REPORT INFORMATION
  Report Type: 
  Country: None (occurrence: None)
  Receive Date: 20050914
  Receipt Date: 20050118
  Transmission Date: 20060218
  Serious: Yes (Disabling)
  Sender: FDA-Public Use
  Company Number: 163-20785-05010321

PATIENT
  Age: 80 Year
  Sex: Male

DRUGS (1)
  1. THALOMID [Suspect]
     Indication: PROSTATE CANCER
     Dosage: 200 MG, DAILY, ORAL
     Route: 048
     Dates: start: 20041119

REACTIONS (3)
  - ABASIA [None]
  - ASTHENIA [None]
  - VISION BLURRED [None]
